FAERS Safety Report 8217586-1 (Version None)
Quarter: 2012Q1

REPORT INFORMATION
  Report Type: 
  Country: None (occurrence: None)
  Receive Date: 20120319
  Receipt Date: 20120319
  Transmission Date: 20120608
  Serious: Yes (Disabling, Congenital Anomaly, Other)
  Sender: FDA-Public Use
  Company Number: None

PATIENT
  Age: 29 Year
  Sex: Female
  Weight: 49.895 kg

DRUGS (1)
  1. METHOTREXATE [Suspect]
     Indication: ECTOPIC PREGNANCY
     Dosage: 75MG
     Dates: start: 20060117, end: 20060117

REACTIONS (4)
  - UMBILICAL CORD ABNORMALITY [None]
  - MATERNAL DRUGS AFFECTING FOETUS [None]
  - ANAL ATRESIA [None]
  - UMBILICAL CORD VASCULAR DISORDER [None]
